FAERS Safety Report 6811315-1 (Version None)
Quarter: 2010Q2

REPORT INFORMATION
  Report Type: 
  Country: None (occurrence: None)
  Receive Date: 20100630
  Receipt Date: 20091124
  Transmission Date: 20101027
  Serious: No
  Sender: FDA-Public Use
  Company Number: US-AMGEN-KDL371600

PATIENT
  Sex: Female
  Weight: 63.1 kg

DRUGS (12)
  1. PROCRIT [Suspect]
     Indication: RENAL FAILURE CHRONIC
     Route: 058
     Dates: start: 20091016, end: 20091016
  2. ASPIRIN [Concomitant]
  3. BYETTA [Concomitant]
  4. CELEXA [Concomitant]
  5. DILAUDID [Concomitant]
  6. EFFEXOR [Concomitant]
  7. ZEMPLAR [Concomitant]
  8. ENALAPRIL MALEATE [Concomitant]
  9. UNSPECIFIED MEDICATION [Concomitant]
  10. LASIX [Concomitant]
  11. NEURONTIN [Concomitant]
  12. FUROSEMIDE [Concomitant]

REACTIONS (7)
  - ADVERSE DRUG REACTION [None]
  - CONSTIPATION [None]
  - INSOMNIA [None]
  - OEDEMA PERIPHERAL [None]
  - PRURITUS [None]
  - SWELLING [None]
  - WEIGHT INCREASED [None]
